FAERS Safety Report 17294321 (Version 1)
Quarter: 2020Q1

REPORT INFORMATION
  Report Type: Spontaneous
  Country: US (occurrence: US)
  Receive Date: 20200121
  Receipt Date: 20200121
  Transmission Date: 20200409
  Serious: Yes (Other)
  Sender: FDA-Public Use
  Company Number: US-PFIZER INC-2020022819

PATIENT
  Age: 77 Year
  Sex: Female
  Weight: 63.5 kg

DRUGS (1)
  1. PROCARDIA [Suspect]
     Active Substance: NIFEDIPINE
     Indication: BLOOD PRESSURE ABNORMAL
     Dosage: 10 MG, 3X/DAY(10MG, 3 TIMES A DAY BY MOUTH)
     Route: 048

REACTIONS (5)
  - Oedema [Not Recovered/Not Resolved]
  - Off label use [Unknown]
  - Coeliac disease [Unknown]
  - Product use in unapproved indication [Unknown]
  - Hypotension [Unknown]
